FAERS Safety Report 4751148-3 (Version None)
Quarter: 2005Q3

REPORT INFORMATION
  Report Type: 
  Country: None (occurrence: None)
  Receive Date: 20050822
  Receipt Date: 20050808
  Transmission Date: 20060218
  Serious: Yes (Death, Hospitalization)
  Sender: FDA-Public Use
  Company Number: CLOF-10070

PATIENT
  Age: 60 Year
  Sex: Female

DRUGS (7)
  1. CLOFARABINE [Suspect]
     Indication: ACUTE MYELOID LEUKAEMIA
  2. TRAMADOL HCL [Concomitant]
  3. ONDANSETRON [Concomitant]
  4. FLUCLOXACILLIN [Concomitant]
  5. ACYCLOVIR [Concomitant]
  6. TRANEMIC ACID [Concomitant]
  7. AMITRIPTYLINE HCL [Concomitant]

REACTIONS (4)
  - ACUTE MYELOID LEUKAEMIA [None]
  - CREPITATIONS [None]
  - HAEMODIALYSIS [None]
  - RENAL FAILURE ACUTE [None]
